FAERS Safety Report 9505976 (Version 1)
Quarter: 2013Q1

REPORT INFORMATION
  Report Type: Spontaneous
  Country: US (occurrence: None)
  Receive Date: 20130305
  Receipt Date: 20130305
  Transmission Date: 20140127
  Serious: Yes (Hospitalization)
  Sender: FDA-Public Use
  Company Number: 1000040309

PATIENT
  Sex: Male

DRUGS (6)
  1. DALIRESP [Suspect]
     Indication: CHRONIC OBSTRUCTIVE PULMONARY DISEASE
     Dosage: 500 MCG (500 MCG, 1 IN 1
     Route: 048
     Dates: start: 2011, end: 2011
  2. SINGULAIR (MONTELUKAST SODIUM)  (MONTELUKAST SODIUM) [Concomitant]
  3. ADVAIR (SERETIDE) (SERETIDE) [Concomitant]
  4. FUROSEMIDE [Concomitant]
  5. ASPIRIN (ACETYLSALICYLIC ACID) (ACETYLSALICYLIC ACID) [Concomitant]
  6. LEVOTHYROXINE (LEVOTHYROXINE SODIUM)  (LEVOTHYROXINE SODIUM) [Concomitant]

REACTIONS (1)
  - Atrial fibrillation [None]
